FAERS Safety Report 8800418 (Version 2)
Quarter: 2015Q1

REPORT INFORMATION
  Report Type: Report from Study
  Country: US (occurrence: US)
  Receive Date: 20120921
  Receipt Date: 20150327
  Transmission Date: 20150721
  Serious: Yes (Death)
  Sender: FDA-Public Use
  Company Number: US-ROCHE-1126426

PATIENT
  Sex: Male

DRUGS (13)
  1. CISPLATIN. [Concomitant]
     Active Substance: CISPLATIN
     Route: 042
  2. PROTONIX (UNITED STATES) [Concomitant]
     Route: 048
  3. DEXAMETHASONE. [Concomitant]
     Active Substance: DEXAMETHASONE
     Route: 065
  4. NEUPOGEN [Concomitant]
     Active Substance: FILGRASTIM
     Route: 058
  5. TYLENOL [Concomitant]
     Active Substance: ACETAMINOPHEN
     Route: 048
  6. MANNITOL. [Concomitant]
     Active Substance: MANNITOL
     Route: 065
  7. AVASTIN [Suspect]
     Active Substance: BEVACIZUMAB
     Indication: PANCREATIC CARCINOMA
     Route: 042
     Dates: start: 20070312
  8. GEMZAR [Concomitant]
     Active Substance: GEMCITABINE HYDROCHLORIDE
     Route: 042
  9. ZOFRAN [Concomitant]
     Active Substance: ONDANSETRON HYDROCHLORIDE
     Route: 042
  10. ANZEMET [Concomitant]
     Active Substance: DOLASETRON MESYLATE
     Route: 048
  11. BENADRYL [Concomitant]
     Active Substance: DIPHENHYDRAMINE HYDROCHLORIDE
     Route: 042
  12. MAGNESIUM SULPHATE [Concomitant]
     Active Substance: MAGNESIUM SULFATE
     Route: 065
  13. CARBOPLATIN. [Concomitant]
     Active Substance: CARBOPLATIN
     Route: 042

REACTIONS (13)
  - Nausea [Unknown]
  - Death [Fatal]
  - Insomnia [Unknown]
  - Dry skin [Unknown]
  - Ascites [Unknown]
  - Off label use [Unknown]
  - Oedema due to cardiac disease [Unknown]
  - Anxiety [Unknown]
  - Abdominal pain [Unknown]
  - Dyspepsia [Unknown]
  - Vomiting [Unknown]
  - Decreased appetite [Unknown]
  - Hypertension [Unknown]
